FAERS Safety Report 6495426-9 (Version None)
Quarter: 2009Q4

REPORT INFORMATION
  Report Type: 
  Country: None (occurrence: None)
  Receive Date: 20091214
  Receipt Date: 20090618
  Transmission Date: 20100525
  Serious: No
  Sender: FDA-Public Use
  Company Number: US-BRISTOL-MYERS SQUIBB COMPANY-14670830

PATIENT
  Age: 35 Year
  Sex: Female
  Weight: 77 kg

DRUGS (6)
  1. ABILIFY [Suspect]
     Indication: BIPOLAR DISORDER
  2. ABILIFY [Suspect]
     Indication: SCHIZOPHRENIA
  3. ABILIFY [Suspect]
     Indication: DELUSIONAL DISORDER, UNSPECIFIED TYPE
  4. WELLBUTRIN [Suspect]
     Indication: BIPOLAR DISORDER
  5. WELLBUTRIN [Suspect]
     Indication: SCHIZOPHRENIA
  6. WELLBUTRIN [Suspect]
     Indication: DELUSIONAL DISORDER, UNSPECIFIED TYPE

REACTIONS (1)
  - WEIGHT INCREASED [None]
